FAERS Safety Report 8532573 (Version 5)
Quarter: 2014Q2

REPORT INFORMATION
  Report Type: Spontaneous
  Country: JP (occurrence: None)
  Receive Date: 20120417
  Receipt Date: 20140429
  Transmission Date: 20141212
  Serious: Yes (Hospitalization, Other)
  Sender: FDA-Public Use
  Company Number: ADR-2010-8377

PATIENT
  Age: 59 Year
  Sex: Male

DRUGS (1)
  1. GABALON [Suspect]
     Indication: MUSCLE SPASTICITY
     Dosage: 35-40 MCG, DAILY INT
     Route: 037

REACTIONS (6)
  - Muscle atrophy [None]
  - Dysarthria [None]
  - Dysphagia [None]
  - Implant site extravasation [None]
  - Amyotrophic lateral sclerosis [None]
  - Cerebrospinal fluid leakage [None]
